FAERS Safety Report 23476567 (Version 1)
Quarter: 2024Q1

REPORT INFORMATION
  Report Type: Report from Study
  Country: US (occurrence: US)
  Receive Date: 20240204
  Receipt Date: 20240204
  Transmission Date: 20240409
  Serious: No
  Sender: FDA-Public Use
  Company Number: US-EXELIXIS-CABO-23063583

PATIENT
  Sex: Male

DRUGS (2)
  1. CABOMETYX [Suspect]
     Active Substance: CABOZANTINIB S-MALATE
     Indication: Renal cancer
     Dosage: 60 MG, QD
     Route: 048
  2. CABOMETYX [Suspect]
     Active Substance: CABOZANTINIB S-MALATE
     Dosage: 40 MG, QD
     Route: 048
     Dates: start: 202306, end: 202306

REACTIONS (12)
  - Somnolence [Recovering/Resolving]
  - Urticaria [Unknown]
  - Peripheral swelling [Unknown]
  - Erythema [Unknown]
  - Renal function test abnormal [Unknown]
  - Swollen tongue [Unknown]
  - Oral pain [Unknown]
  - Fatigue [Not Recovered/Not Resolved]
  - Nausea [Unknown]
  - Vomiting [Unknown]
  - Blood pressure increased [Unknown]
  - Taste disorder [Unknown]
